FAERS Safety Report 22932236 (Version 2)
Quarter: 2025Q3

REPORT INFORMATION
  Report Type: Spontaneous
  Country: JP (occurrence: JP)
  Receive Date: 20230912
  Receipt Date: 20250929
  Transmission Date: 20251021
  Serious: Yes (Other)
  Sender: MALLINCKRODT
  Company Number: JP-MALLINCKRODT-MNK202304305

PATIENT
  Age: 58 Year
  Sex: Male
  Weight: 85 kg

DRUGS (12)
  1. NITRIC OXIDE [Suspect]
     Active Substance: NITRIC OXIDE
     Indication: Pulmonary hypertension
     Route: 055
  2. NITRIC OXIDE [Suspect]
     Active Substance: NITRIC OXIDE
     Indication: Cardiac operation
  3. NITRIC OXIDE [Suspect]
     Active Substance: NITRIC OXIDE
     Route: 055
  4. NITRIC OXIDE [Suspect]
     Active Substance: NITRIC OXIDE
     Route: 055
  5. NITRIC OXIDE [Suspect]
     Active Substance: NITRIC OXIDE
     Route: 055
  6. NITRIC OXIDE [Suspect]
     Active Substance: NITRIC OXIDE
     Route: 055
  7. NITRIC OXIDE [Suspect]
     Active Substance: NITRIC OXIDE
     Route: 055
  8. NITRIC OXIDE [Suspect]
     Active Substance: NITRIC OXIDE
     Route: 055
  9. NITRIC OXIDE [Suspect]
     Active Substance: NITRIC OXIDE
     Route: 055
  10. ADRENALINE [EPINEPHRINE BITARTRATE] [Concomitant]
     Indication: Cardiac arrest
  11. DOPAMINE [Concomitant]
     Active Substance: DOPAMINE HYDROCHLORIDE
  12. DOBUTAMINE [Concomitant]
     Active Substance: DOBUTAMINE HYDROCHLORIDE

REACTIONS (10)
  - Depressed level of consciousness [Recovering/Resolving]
  - Seizure [Recovering/Resolving]
  - Pulmonary hypertensive crisis [Unknown]
  - Ventricular tachycardia [Recovering/Resolving]
  - Pulseless electrical activity [Recovering/Resolving]
  - Cardiac arrest [Unknown]
  - Acidosis [Unknown]
  - Blood pressure systolic decreased [Recovered/Resolved]
  - Pulmonary arterial pressure abnormal [Recovered/Resolved]
  - Abdominal pain lower [Recovered/Resolved]
